FAERS Safety Report 7434185-X (Version None)
Quarter: 2011Q2

REPORT INFORMATION
  Report Type: 
  Country: None (occurrence: None)
  Receive Date: 20110425
  Receipt Date: 20110418
  Transmission Date: 20111010
  Serious: No
  Sender: FDA-Public Use
  Company Number: US-PFIZER INC-2011085167

PATIENT
  Sex: Female

DRUGS (2)
  1. PRISTIQ [Suspect]
     Dosage: UNK
  2. LAMISIL [Suspect]
     Dosage: UNK

REACTIONS (3)
  - FATIGUE [None]
  - DIZZINESS [None]
  - NAUSEA [None]
